FAERS Safety Report 13916728 (Version 1)
Quarter: 2017Q3

REPORT INFORMATION
  Report Type: Report from Study
  Country: US (occurrence: US)
  Receive Date: 20170829
  Receipt Date: 20170829
  Transmission Date: 20171127
  Serious: Yes (Hospitalization, Other)
  Sender: FDA-Public Use
  Company Number: US-JNJFOC-20170819275

PATIENT
  Age: 72 Year
  Sex: Female
  Weight: 70.31 kg

DRUGS (2)
  1. XARELTO [Suspect]
     Active Substance: RIVAROXABAN
     Indication: THROMBOSIS
     Route: 048
     Dates: start: 201702, end: 201702
  2. XARELTO [Suspect]
     Active Substance: RIVAROXABAN
     Indication: THROMBOSIS
     Route: 048
     Dates: start: 201702, end: 20170821

REACTIONS (10)
  - Weight increased [Not Recovered/Not Resolved]
  - Pharyngeal haemorrhage [Unknown]
  - Fatigue [Unknown]
  - Body height decreased [Not Recovered/Not Resolved]
  - Oedema peripheral [Unknown]
  - Headache [Unknown]
  - Ocular hyperaemia [Unknown]
  - Abdominal distension [Unknown]
  - Blood count abnormal [Unknown]
  - Musculoskeletal stiffness [Unknown]

NARRATIVE: CASE EVENT DATE: 2017
